FAERS Safety Report 18507332 (Version 1)
Quarter: 2020Q4

REPORT INFORMATION
  Report Type: Report from Study
  Country: CO (occurrence: CO)
  Receive Date: 20201116
  Receipt Date: 20201116
  Transmission Date: 20210114
  Serious: Yes (Other)
  Sender: FDA-Public Use
  Company Number: CO-BAYER-2020-239700

PATIENT
  Age: 24 Year
  Sex: Female

DRUGS (2)
  1. JAYDESS [Suspect]
     Active Substance: LEVONORGESTREL
     Dosage: 14 ?G PER DAY CONTINUOUSLY
     Route: 015
     Dates: start: 202010, end: 20201030
  2. KYLEENA [Suspect]
     Active Substance: LEVONORGESTREL
     Indication: CONTRACEPTION
     Dosage: 17.5 ?G PER DAY, CONTINUOUSLY
     Route: 015
     Dates: start: 20201030, end: 20201030

REACTIONS (9)
  - Complication of device removal [None]
  - Cervix haemorrhage uterine [Recovered/Resolved]
  - Uterine spasm [Recovered/Resolved]
  - Procedural pain [Recovered/Resolved]
  - Amenorrhoea [Recovered/Resolved]
  - Device use issue [None]
  - Complication of device insertion [None]
  - Device issue [None]
  - Device difficult to use [None]

NARRATIVE: CASE EVENT DATE: 201710
